FAERS Safety Report 15258019 (Version 1)
Quarter: 2018Q3

REPORT INFORMATION
  Report Type: Spontaneous
  Country: US (occurrence: US)
  Receive Date: 20180808
  Receipt Date: 20180808
  Transmission Date: 20181010
  Serious: No
  Sender: FDA-Public Use
  Company Number: US-009507513-1808USA000603

PATIENT
  Age: 29 Year
  Sex: Female
  Weight: 68.03 kg

DRUGS (1)
  1. NUVARING [Suspect]
     Active Substance: ETHINYL ESTRADIOL\ETONOGESTREL
     Indication: CONTRACEPTION
     Dosage: 1 RING/CONTINUOUSLY FOR 4 WEEKS
     Route: 067
     Dates: start: 201805

REACTIONS (4)
  - Menstruation delayed [Not Recovered/Not Resolved]
  - Incorrect drug administration duration [Unknown]
  - Drug prescribing error [Unknown]
  - Inappropriate schedule of drug administration [Unknown]

NARRATIVE: CASE EVENT DATE: 20180722
